FAERS Safety Report 23603171 (Version 1)
Quarter: 2024Q1

REPORT INFORMATION
  Report Type: Spontaneous
  Country: US (occurrence: US)
  Receive Date: 20240307
  Receipt Date: 20240307
  Transmission Date: 20240410
  Serious: Yes (Other)
  Sender: FDA-Public Use
  Company Number: US-AUROBINDO-AUR-APL-2024-010240

PATIENT
  Sex: Female

DRUGS (1)
  1. CIPROFLOXACIN [Suspect]
     Active Substance: CIPROFLOXACIN
     Indication: Product used for unknown indication
     Dosage: 500 MILLIGRAM
     Route: 048

REACTIONS (12)
  - Neuropathy peripheral [Unknown]
  - Altered state of consciousness [Unknown]
  - Amnesia [Unknown]
  - Agitation [Unknown]
  - Confusional state [Unknown]
  - Emotional poverty [Unknown]
  - Flat affect [Unknown]
  - Gait disturbance [Unknown]
  - Headache [Unknown]
  - Restlessness [Unknown]
  - Tremor [Unknown]
  - Vision blurred [Unknown]
